FAERS Safety Report 5394911-0 (Version None)
Quarter: 2007Q3

REPORT INFORMATION
  Report Type: 
  Country: None (occurrence: None)
  Receive Date: 20070720
  Receipt Date: 20070705
  Transmission Date: 20080115
  Serious: Yes (Other)
  Sender: FDA-Public Use
  Company Number: 2007RR-08500

PATIENT
  Sex: Male

DRUGS (1)
  1. GABAPENTIN [Suspect]
     Indication: PAIN
     Dosage: 6.4 G, QD,

REACTIONS (2)
  - ACCIDENTAL OVERDOSE [None]
  - MEDICATION ERROR [None]
